FAERS Safety Report 15047672 (Version 1)
Quarter: 2018Q2

REPORT INFORMATION
  Report Type: Spontaneous
  Country: US (occurrence: US)
  Receive Date: 20180601
  Receipt Date: 20180601
  Transmission Date: 20180711
  Serious: No
  Sender: FDA-Public Use
  Company Number: None

PATIENT
  Age: 23 Year
  Sex: Male
  Weight: 63.9 kg

DRUGS (1)
  1. APLISOL [Suspect]
     Active Substance: TUBERCULIN PURIFIED PROTEIN DERIVATIVE
     Indication: ANTIBIOTIC PROPHYLAXIS
     Route: 023
     Dates: start: 20180501

REACTIONS (2)
  - Mycobacterium tuberculosis complex test [None]
  - Erythema [None]

NARRATIVE: CASE EVENT DATE: 20180601
